FAERS Safety Report 22979229 (Version 2)
Quarter: 2023Q4

REPORT INFORMATION
  Report Type: Report from Study
  Country: ES (occurrence: ES)
  Receive Date: 20230925
  Receipt Date: 20231006
  Transmission Date: 20240110
  Serious: Yes (Hospitalization)
  Sender: FDA-Public Use
  Company Number: ES-PFIZER INC-202300153660

PATIENT
  Age: 64 Year
  Sex: Male
  Weight: 74 kg

DRUGS (13)
  1. ELRANATAMAB [Suspect]
     Active Substance: ELRANATAMAB
     Indication: Plasma cell myeloma
     Dosage: 76 MG, WEEKLY
     Route: 058
     Dates: start: 20221215, end: 20230330
  2. ACYCLOVIR [Concomitant]
     Active Substance: ACYCLOVIR
     Dosage: 800 MG, 2X/DAY
     Route: 048
     Dates: start: 20220827, end: 20230908
  3. PREGABALIN [Concomitant]
     Active Substance: PREGABALIN
     Dosage: 25 MG, 2X/DAY
     Route: 048
     Dates: start: 20220923
  4. TAMSULOSIN [Concomitant]
     Active Substance: TAMSULOSIN
     Dosage: 0.4 MG, 1X/DAY
     Route: 048
     Dates: start: 2022
  5. LEUCOVORIN [Concomitant]
     Active Substance: LEUCOVORIN\LEUCOVORIN CALCIUM
     Dosage: 15 MG, 1X/DAY
     Route: 048
     Dates: start: 20220919
  6. OSTINE [Concomitant]
     Dosage: 1 TABLET, 2X/DAY
     Route: 048
     Dates: start: 20220309
  7. TRIMETOPRIMA SULFAMETOXAZOL [Concomitant]
     Dosage: [SULFAMETHOXAZOLE 800 MG]/[TRIMETHOPRIM 160 MG], 3 TIMES PER WEEK
     Route: 048
     Dates: start: 20220919
  8. VITAMIN B12 [Concomitant]
     Active Substance: CYANOCOBALAMIN
     Dosage: 1 MG, EVERY 2 MONTHS (Q2M)
     Route: 030
     Dates: start: 20200108
  9. EBASTINE [Concomitant]
     Active Substance: EBASTINE
     Dosage: 10 MG, WEEKLY
     Route: 048
     Dates: start: 20221229
  10. NEUPOGEN [Concomitant]
     Active Substance: FILGRASTIM
     Dosage: Q24H
     Route: 058
     Dates: start: 20230409, end: 20230517
  11. OMEPRAZOLE [Concomitant]
     Active Substance: OMEPRAZOLE
     Dosage: 20 MG, 1X/DAY
     Route: 048
     Dates: start: 2022
  12. SERTRALINE [Concomitant]
     Active Substance: SERTRALINE HYDROCHLORIDE
     Dosage: 50 MG, 1X/DAY
     Route: 048
     Dates: start: 2022
  13. DENOSUMAB [Concomitant]
     Active Substance: DENOSUMAB
     Dosage: 120 MG, EVERY 4 WEEKS
     Route: 058
     Dates: start: 20220309

REACTIONS (1)
  - Respiratory tract infection [Recovered/Resolved]

NARRATIVE: CASE EVENT DATE: 20230409
